FAERS Safety Report 4395017-X (Version None)
Quarter: 2004Q3

REPORT INFORMATION
  Report Type: 
  Country: None (occurrence: None)
  Receive Date: 20040712
  Receipt Date: 20040324
  Transmission Date: 20050211
  Serious: Yes (Other)
  Sender: FDA-Public Use
  Company Number: PHBS2004CA04080

PATIENT
  Age: 31 Year
  Sex: Female

DRUGS (2)
  1. ZELNORM [Suspect]
     Indication: IRRITABLE BOWEL SYNDROME
     Dosage: 6 MG, BID
     Route: 048
     Dates: start: 20030930, end: 20040303
  2. ZELNORM [Suspect]
     Dosage: 3 MG, QOD
     Route: 048

REACTIONS (8)
  - ABDOMINAL PAIN [None]
  - BIOPSY INTESTINE ABNORMAL [None]
  - COLITIS ISCHAEMIC [None]
  - CONSTIPATION [None]
  - DIARRHOEA [None]
  - GASTROINTESTINAL DISORDER [None]
  - RECTAL HAEMORRHAGE [None]
  - SIGMOIDOSCOPY ABNORMAL [None]
